FAERS Safety Report 8077540-X (Version None)
Quarter: 2012Q1

REPORT INFORMATION
  Report Type: 
  Country: None (occurrence: None)
  Receive Date: 20120127
  Receipt Date: 20120116
  Transmission Date: 20120608
  Serious: Yes (Hospitalization)
  Sender: FDA-Public Use
  Company Number: US-ELI_LILLY_AND_COMPANY-US201201002501

PATIENT
  Sex: Female

DRUGS (2)
  1. FORTEO [Suspect]
     Dosage: UNK, UNKNOWN
  2. FORTEO [Suspect]
     Dosage: UNK UNK, UNKNOWN
     Route: 065

REACTIONS (4)
  - BRONCHITIS [None]
  - VIRAL INFECTION [None]
  - MALAISE [None]
  - CHRONIC OBSTRUCTIVE PULMONARY DISEASE [None]
